FAERS Safety Report 6805277-0 (Version None)
Quarter: 2010Q2

REPORT INFORMATION
  Report Type: 
  Country: None (occurrence: None)
  Receive Date: 20100628
  Receipt Date: 20071003
  Transmission Date: 20101027
  Serious: No
  Sender: FDA-Public Use
  Company Number: US-PFIZER INC-2007083300

PATIENT
  Sex: Female

DRUGS (3)
  1. XALATAN [Suspect]
     Indication: INTRAOCULAR PRESSURE TEST ABNORMAL
     Dates: start: 20070201
  2. ANTIHYPERTENSIVES [Concomitant]
  3. CHOLESTEROL [Concomitant]

REACTIONS (1)
  - TREMOR [None]
